FAERS Safety Report 10354134 (Version 2)
Quarter: 2014Q3

REPORT INFORMATION
  Report Type: Report from Study
  Country: FI (occurrence: FI)
  Receive Date: 20140731
  Receipt Date: 20140731
  Transmission Date: 20150326
  Serious: Yes (Disabling)
  Sender: FDA-Public Use
  Company Number: PHHY2014FI090714

PATIENT
  Sex: Female

DRUGS (2)
  1. GILENYA [Suspect]
     Active Substance: FINGOLIMOD HYDROCHLORIDE
     Indication: RELAPSING-REMITTING MULTIPLE SCLEROSIS
     Dosage: UNK
     Dates: start: 20140711, end: 20140722
  2. HEINIX [Concomitant]
     Indication: SEASONAL ALLERGY

REACTIONS (3)
  - Thought blocking [Recovered/Resolved]
  - Disturbance in attention [Recovered/Resolved]
  - Hangover [Recovered/Resolved]
